FAERS Safety Report 13828920 (Version 1)
Quarter: 2017Q3

REPORT INFORMATION
  Report Type: Spontaneous
  Country: US (occurrence: US)
  Receive Date: 20170802
  Receipt Date: 20170802
  Transmission Date: 20171127
  Serious: Yes (Hospitalization, Other)
  Sender: FDA-Public Use
  Company Number: None

PATIENT
  Age: 39 Year
  Sex: Female
  Weight: 61.65 kg

DRUGS (5)
  1. CLONAZEPAM. [Concomitant]
     Active Substance: CLONAZEPAM
  2. VITAMIN D [Concomitant]
     Active Substance: CHOLECALCIFEROL
  3. REXULTI [Suspect]
     Active Substance: BREXPIPRAZOLE
     Indication: ANTIDEPRESSANT THERAPY
  4. AMANTADINE HCL [Concomitant]
     Active Substance: AMANTADINE HYDROCHLORIDE
  5. SERTRALINE HCL [Concomitant]
     Active Substance: SERTRALINE HYDROCHLORIDE

REACTIONS (12)
  - Nasopharyngitis [None]
  - Thought blocking [None]
  - Brain injury [None]
  - Disturbance in attention [None]
  - Memory impairment [None]
  - Dyskinesia [None]
  - Nausea [None]
  - Amnesia [None]
  - Diarrhoea [None]
  - Influenza like illness [None]
  - Body temperature fluctuation [None]
  - Dystonia [None]

NARRATIVE: CASE EVENT DATE: 20170714
